FAERS Safety Report 18308161 (Version 1)
Quarter: 2020Q3

REPORT INFORMATION
  Report Type: Spontaneous
  Country: JP (occurrence: JP)
  Receive Date: 20200924
  Receipt Date: 20200924
  Transmission Date: 20201103
  Serious: Yes (Death, Hospitalization)
  Sender: FDA-Public Use
  Company Number: JP-MYLANLABS-2020M1081032

PATIENT
  Age: 79 Year
  Sex: Male

DRUGS (2)
  1. PREDNISOLONE. [Suspect]
     Active Substance: PREDNISOLONE
     Indication: EOSINOPHILIC PNEUMONIA
     Route: 065
  2. METHYLPREDNISOLONE. [Suspect]
     Active Substance: METHYLPREDNISOLONE
     Indication: EOSINOPHILIC PNEUMONIA
     Dosage: 1 MILLIGRAM/KILOGRAM
     Route: 065

REACTIONS (2)
  - Condition aggravated [Fatal]
  - Mycobacterium avium complex infection [Fatal]
